FAERS Safety Report 10862438 (Version 2)
Quarter: 2015Q1

REPORT INFORMATION
  Report Type: Report from Study
  Country: DE (occurrence: DE)
  Receive Date: 20150224
  Receipt Date: 20150225
  Transmission Date: 20150721
  Serious: Yes (Death, Hospitalization)
  Sender: FDA-Public Use
  Company Number: DE-ABBVIE-14P-062-1314390-00

PATIENT
  Age: 76 Year
  Sex: Male

DRUGS (9)
  1. KEPPRA [Concomitant]
     Active Substance: LEVETIRACETAM
     Indication: PRODUCT USED FOR UNKNOWN INDICATION
  2. TASMAR [Concomitant]
     Active Substance: TOLCAPONE
     Indication: PRODUCT USED FOR UNKNOWN INDICATION
  3. MAGNESIUM [Concomitant]
     Active Substance: MAGNESIUM
     Indication: PRODUCT USED FOR UNKNOWN INDICATION
  4. CARBIMAZOLE [Concomitant]
     Active Substance: CARBIMAZOLE
     Indication: PRODUCT USED FOR UNKNOWN INDICATION
  5. CLOZAPINE. [Concomitant]
     Active Substance: CLOZAPINE
     Indication: PRODUCT USED FOR UNKNOWN INDICATION
  6. DUODOPA [Suspect]
     Active Substance: CARBIDOPA\LEVODOPA
     Dosage: MD 7.0 MLCRD 3.3 ML/HCRN 2.8 ML/HED 1.3 ML
     Route: 050
     Dates: start: 20101216
  7. DUODOPA [Suspect]
     Active Substance: CARBIDOPA\LEVODOPA
     Dosage: MD 9.0 ML CRD 3.3 ML/H CRN: 2.8 ML/H ED 2.2 ML
     Route: 050
     Dates: start: 2014
  8. RIVASTIGMIN (EXELON) [Concomitant]
     Indication: PRODUCT USED FOR UNKNOWN INDICATION
  9. DUODOPA [Suspect]
     Active Substance: CARBIDOPA\LEVODOPA
     Indication: PARKINSON^S DISEASE
     Route: 050
     Dates: start: 20101209, end: 20101216

REACTIONS (21)
  - Respiratory failure [Unknown]
  - Polyp [Unknown]
  - Seizure [Unknown]
  - Dyspnoea [Unknown]
  - Sepsis [Unknown]
  - Disturbance in attention [Unknown]
  - Bedridden [Unknown]
  - Quality of life decreased [Unknown]
  - Organ failure [Unknown]
  - Blood lactic acid increased [Unknown]
  - Acute kidney injury [Unknown]
  - Secretion discharge [Unknown]
  - Parkinson^s disease [Unknown]
  - Escherichia bacteraemia [Unknown]
  - Lung infiltration [Unknown]
  - Pleural effusion [Unknown]
  - C-reactive protein increased [Unknown]
  - Cough [Unknown]
  - Inflammation [Recovering/Resolving]
  - Pneumonia [Fatal]
  - Pneumonia aspiration [Unknown]

NARRATIVE: CASE EVENT DATE: 2014
